FAERS Safety Report 22032890 (Version 2)
Quarter: 2023Q1

REPORT INFORMATION
  Report Type: Report from Study
  Country: BR (occurrence: BR)
  Receive Date: 20230224
  Receipt Date: 20230306
  Transmission Date: 20230418
  Serious: Yes (Other)
  Sender: FDA-Public Use
  Company Number: BR-JNJFOC-20230205684

PATIENT
  Age: 48 Year
  Sex: Female
  Weight: 79 kg

DRUGS (6)
  1. REMICADE [Suspect]
     Active Substance: INFLIXIMAB
     Indication: Crohn^s disease
     Dosage: 4 VIALS
     Route: 041
     Dates: start: 20150901
  2. INFLIXIMAB [Suspect]
     Active Substance: INFLIXIMAB
     Indication: Crohn^s disease
     Route: 065
  3. AZATHIOPRINE [Concomitant]
     Active Substance: AZATHIOPRINE
     Indication: Crohn^s disease
  4. ESCITALOPRAM [Concomitant]
     Active Substance: ESCITALOPRAM OXALATE
  5. ALPRAZOLAM [Concomitant]
     Active Substance: ALPRAZOLAM
  6. MIDAZOLAM [Concomitant]
     Active Substance: MIDAZOLAM

REACTIONS (4)
  - Intestinal stenosis [Unknown]
  - Crohn^s disease [Not Recovered/Not Resolved]
  - Drug ineffective [Unknown]
  - Off label use [Unknown]

NARRATIVE: CASE EVENT DATE: 20220101
